FAERS Safety Report 10553589 (Version 2)
Quarter: 2014Q4

REPORT INFORMATION
  Report Type: Spontaneous
  Country: CN (occurrence: CN)
  Receive Date: 20141030
  Receipt Date: 20141113
  Transmission Date: 20150529
  Serious: Yes (Other)
  Sender: FDA-Public Use
  Company Number: CN-JNJFOC-20141014288

PATIENT
  Age: 5 Month
  Sex: Male
  Weight: 7.5 kg

DRUGS (5)
  1. CEFACLOR. [Suspect]
     Active Substance: CEFACLOR
     Indication: PYREXIA
     Route: 065
     Dates: start: 20140421
  2. TYLENOL [Suspect]
     Active Substance: ACETAMINOPHEN
     Indication: PYREXIA
     Route: 048
     Dates: start: 20140421, end: 20140422
  3. SODIUM CHLORIDE. [Concomitant]
     Active Substance: SODIUM CHLORIDE
     Indication: PRODUCT USED FOR UNKNOWN INDICATION
     Route: 042
     Dates: start: 20140421, end: 20140421
  4. TYLENOL [Suspect]
     Active Substance: ACETAMINOPHEN
     Route: 048
  5. PIPERACILLIN SODIUM / TAZOBACTAM SODIUM [Concomitant]
     Indication: INFECTION
     Route: 042
     Dates: start: 20140421, end: 20140421

REACTIONS (3)
  - Restlessness [Unknown]
  - Rash generalised [Recovered/Resolved]
  - Crying [Unknown]

NARRATIVE: CASE EVENT DATE: 20140421
